FAERS Safety Report 4537460-1 (Version None)
Quarter: 2004Q4

REPORT INFORMATION
  Report Type: 
  Country: None (occurrence: None)
  Receive Date: 20041223
  Receipt Date: 20041011
  Transmission Date: 20050328
  Serious: Yes (Life-Threatening, Disabling)
  Sender: FDA-Public Use
  Company Number: US-MERCK-0410USA01668

PATIENT
  Age: 71 Year
  Sex: Female
  Weight: 62 kg

DRUGS (7)
  1. VIOXX [Suspect]
     Indication: OSTEOARTHRITIS
     Route: 048
     Dates: start: 20000101, end: 20040101
  2. VIOXX [Suspect]
     Indication: POLYMYALGIA RHEUMATICA
     Route: 048
     Dates: start: 20000101, end: 20040101
  3. NEXIUM [Concomitant]
     Route: 065
  4. ALLEGRA [Concomitant]
     Route: 065
  5. ADVAIR DISKUS 100/50 [Concomitant]
     Route: 065
  6. [THERAPY UNSPECIFIED] [Concomitant]
     Indication: HYPERTENSION
     Route: 065
  7. FLEXERIL [Concomitant]
     Route: 048

REACTIONS (3)
  - BLOOD CREATININE INCREASED [None]
  - BLOOD UREA INCREASED [None]
  - RENAL DISORDER [None]
